FAERS Safety Report 25855460 (Version 2)
Quarter: 2025Q4

REPORT INFORMATION
  Report Type: Report from Study
  Country: EU (occurrence: EU)
  Receive Date: 20250927
  Receipt Date: 20251124
  Transmission Date: 20260118
  Serious: Yes (Other)
  Sender: JOHNSON AND JOHNSON
  Company Number: EU-JNJFOC-20250921256

PATIENT
  Age: 36 Year
  Sex: Female

DRUGS (2)
  1. ESKETAMINE [Suspect]
     Active Substance: ESKETAMINE
     Indication: Depression
     Dosage: 28 MG, ALSO ON 07-AUG-2023, 14-AUG-2023, 17-AUG-2023, 21-AUG-2023, 24-AUG-2023, 28-AUG-2023, 31-AUG-
     Route: 045
     Dates: start: 20230803, end: 20240125
  2. ESKETAMINE [Suspect]
     Active Substance: ESKETAMINE
     Dosage: 56 MG, ALSO ON 26-OCT-2023, 02-NOV-2023, 09-NOV-2023, 16-NOV-2023, 23-NOV-2023, 30-NOV-2023, 07-DEC-
     Route: 045
     Dates: start: 20230328

REACTIONS (3)
  - Hallucination [Recovered/Resolved]
  - Erythema [Recovered/Resolved]
  - Dissociation [Recovered/Resolved]

NARRATIVE: CASE EVENT DATE: 20240229
